FAERS Safety Report 20161263 (Version 1)
Quarter: 2021Q4

REPORT INFORMATION
  Report Type: Spontaneous
  Country: US (occurrence: None)
  Receive Date: 20211207
  Receipt Date: 20211207
  Transmission Date: 20220304
  Serious: Yes (Life-Threatening, Hospitalization)
  Sender: FDA-Public Use
  Company Number: None

PATIENT
  Age: 58 Year
  Sex: Female

DRUGS (1)
  1. JARDIANCE [Suspect]
     Active Substance: EMPAGLIFLOZIN
     Indication: Type 2 diabetes mellitus
     Dosage: FREQUENCY : DAILY;?
     Route: 048
     Dates: end: 20211109

REACTIONS (7)
  - Euglycaemic diabetic ketoacidosis [None]
  - Abdominal pain upper [None]
  - Blood bicarbonate decreased [None]
  - Metabolic acidosis [None]
  - Blood glucose increased [None]
  - Blood ketone body increased [None]
  - Therapy interrupted [None]

NARRATIVE: CASE EVENT DATE: 20211109
